FAERS Safety Report 4534867-3 (Version None)
Quarter: 2004Q4

REPORT INFORMATION
  Report Type: 
  Country: None (occurrence: None)
  Receive Date: 20041222
  Receipt Date: 20040520
  Transmission Date: 20050328
  Serious: No
  Sender: FDA-Public Use
  Company Number: US-BRISTOL-MYERS SQUIBB COMPANY-12592390

PATIENT
  Age: 46 Year
  Sex: Male
  Weight: 93 kg

DRUGS (5)
  1. PRAVACHOL [Suspect]
     Indication: BLOOD CHOLESTEROL INCREASED
     Route: 048
  2. THERA PLUS [Concomitant]
  3. SELENIUM TRACE METAL ADDITIVE [Concomitant]
  4. ANDREW LESSMAN HEALTHY HAIR SKIN NAILS [Concomitant]
  5. ULTIMATE ANTIOXIDANT [Concomitant]

REACTIONS (1)
  - PALPITATIONS [None]
